FAERS Safety Report 7118097-7 (Version None)
Quarter: 2010Q4

REPORT INFORMATION
  Report Type: 
  Country: None (occurrence: None)
  Receive Date: 20101123
  Receipt Date: 20101112
  Transmission Date: 20110411
  Serious: No
  Sender: FDA-Public Use
  Company Number: US-PFIZER INC-2010123346

PATIENT
  Sex: Female

DRUGS (1)
  1. GABAPENTIN [Suspect]
     Dosage: UNK
     Route: 048

REACTIONS (6)
  - DYSPHAGIA [None]
  - MALAISE [None]
  - PRODUCT ODOUR ABNORMAL [None]
  - PRODUCT TASTE ABNORMAL [None]
  - RETCHING [None]
  - WRONG TECHNIQUE IN DRUG USAGE PROCESS [None]
